FAERS Safety Report 4699266-2 (Version None)
Quarter: 2005Q2

REPORT INFORMATION
  Report Type: 
  Country: None (occurrence: None)
  Receive Date: 20050624
  Receipt Date: 20050322
  Transmission Date: 20051028
  Serious: Yes (Death, Hospitalization)
  Sender: FDA-Public Use
  Company Number: US-MERCK-0503USA04201

PATIENT
  Age: 47 Year
  Sex: Male
  Weight: 95 kg

DRUGS (3)
  1. VIOXX [Suspect]
     Indication: ARTHRITIS
     Route: 048
     Dates: start: 20010824, end: 20030315
  2. VIOXX [Suspect]
     Indication: CARPAL TUNNEL SYNDROME
     Route: 048
     Dates: start: 20010824, end: 20030315
  3. CLARITIN-D [Concomitant]
     Route: 065

REACTIONS (20)
  - ACUTE RESPIRATORY FAILURE [None]
  - BASILAR ARTERY OCCLUSION [None]
  - BRAIN STEM INFARCTION [None]
  - CEREBROVASCULAR ACCIDENT [None]
  - CHEST PAIN [None]
  - DIPLOPIA [None]
  - ELECTROLYTE IMBALANCE [None]
  - FACIAL PALSY [None]
  - HAEMORRHAGIC STROKE [None]
  - HYPERTENSION [None]
  - INFECTION IN AN IMMUNOCOMPROMISED HOST [None]
  - LEUKOCYTOSIS [None]
  - LOCKED-IN SYNDROME [None]
  - PNEUMONIA [None]
  - PYREXIA [None]
  - RESPIRATORY FAILURE [None]
  - SEPSIS [None]
  - SINUSITIS BACTERIAL [None]
  - STAPHYLOCOCCAL INFECTION [None]
  - TRACHEOBRONCHITIS [None]
